FAERS Safety Report 7519242-1 (Version None)
Quarter: 2011Q2

REPORT INFORMATION
  Report Type: 
  Country: None (occurrence: None)
  Receive Date: 20110523
  Receipt Date: 20110512
  Transmission Date: 20111010
  Serious: No
  Sender: FDA-Public Use
  Company Number: 2011SP019536

PATIENT
  Age: 29 Year
  Sex: Female
  Weight: 111 kg

DRUGS (1)
  1. CERAZETTE (DESOGESTREL /00754001/) [Suspect]
     Indication: CONTRACEPTION
     Dates: start: 20101214, end: 20110504

REACTIONS (1)
  - HEPATIC NEOPLASM [None]
